FAERS Safety Report 6922539-7 (Version None)
Quarter: 2010Q3

REPORT INFORMATION
  Report Type: 
  Country: None (occurrence: None)
  Receive Date: 20100813
  Receipt Date: 20100804
  Transmission Date: 20110219
  Serious: Yes (Other)
  Sender: FDA-Public Use
  Company Number: KR-ASTRAZENECA-2010SE33921

PATIENT
  Age: 70 Year
  Sex: Female
  Weight: 56 kg

DRUGS (4)
  1. MEPIVACAINE HCL [Suspect]
     Indication: NERVE BLOCK
     Route: 053
  2. ANTIHYPERTENSIVES [Concomitant]
     Indication: HYPERTENSION
     Dosage: DAILY
  3. ANTI-DIABETIC [Concomitant]
     Indication: DIABETES MELLITUS
  4. MIDAZOLAM HCL [Concomitant]
     Dosage: 1.0 MG 30 MINUTES BEFORE SURGERY
     Route: 030

REACTIONS (3)
  - BLOOD PRESSURE INCREASED [None]
  - DYSKINESIA [None]
  - HEART RATE INCREASED [None]
